FAERS Safety Report 20368777 (Version 1)
Quarter: 2022Q1

REPORT INFORMATION
  Report Type: Spontaneous
  Country: US (occurrence: None)
  Receive Date: 20220121
  Receipt Date: 20220121
  Transmission Date: 20220423
  Serious: Yes (Hospitalization)
  Sender: FDA-Public Use
  Company Number: None

PATIENT
  Sex: Male

DRUGS (1)
  1. CAPECITABINE [Suspect]
     Active Substance: CAPECITABINE
     Indication: Colon cancer
     Dosage: TAKE 5 TABLETS BY MOUTH 2 TIMES DAILY FOR 14 DAYS ON AND THEN OFF FOR 1 DAYS?
     Route: 048
     Dates: start: 20211231

REACTIONS (2)
  - Nausea [None]
  - Weight decreased [None]
